FAERS Safety Report 22759572 (Version 5)
Quarter: 2023Q4

REPORT INFORMATION
  Report Type: Spontaneous
  Country: US (occurrence: US)
  Receive Date: 20230728
  Receipt Date: 20231006
  Transmission Date: 20240110
  Serious: No
  Sender: FDA-Public Use
  Company Number: US-PFIZER INC-202300260071

PATIENT
  Age: 13 Year
  Sex: Female
  Weight: 42.177 kg

DRUGS (1)
  1. GENOTROPIN [Suspect]
     Active Substance: SOMATROPIN
     Indication: Blood growth hormone abnormal
     Dosage: 1.2 MG
     Dates: start: 202307

REACTIONS (2)
  - Device delivery system issue [Unknown]
  - Poor quality device used [Unknown]
